FAERS Safety Report 8618309 (Version 8)
Quarter: 2012Q4

REPORT INFORMATION
  Report Type: Report from Study
  Country: HR (occurrence: HR)
  Receive Date: 20120615
  Receipt Date: 20120927
  Transmission Date: 20130627
  Serious: Yes (Other)
  Sender: FDA-Public Use
  Company Number: HR-BAXTER-2012BAX007734

PATIENT
  Age: 29 Year
  Sex: Male
  Weight: 85 kg

DRUGS (192)
  1. FEIBA NF [Suspect]
     Indication: PROPHYLAXIS
     Route: 042
     Dates: start: 20110415, end: 20110415
  2. FEIBA NF [Suspect]
     Indication: HEMOPHILIA
     Route: 042
     Dates: start: 20110417, end: 20110417
  3. FEIBA NF [Suspect]
     Indication: FACTOR VIII INHIBITION
     Route: 042
     Dates: start: 20110419, end: 20110419
  4. FEIBA NF [Suspect]
     Indication: BLEEDING
     Route: 042
     Dates: start: 20110421, end: 20110421
  5. FEIBA NF [Suspect]
     Route: 042
     Dates: start: 20110423, end: 20110423
  6. FEIBA NF [Suspect]
     Route: 042
     Dates: start: 20110425, end: 20110425
  7. FEIBA NF [Suspect]
     Route: 042
     Dates: start: 20110427, end: 20110427
  8. FEIBA NF [Suspect]
     Route: 042
     Dates: start: 20110429, end: 20110429
  9. FEIBA NF [Suspect]
     Route: 042
     Dates: start: 20110501, end: 20110501
  10. FEIBA NF [Suspect]
     Route: 042
     Dates: start: 20110505, end: 20110505
  11. FEIBA NF [Suspect]
     Route: 042
     Dates: start: 20110507, end: 20110507
  12. FEIBA NF [Suspect]
     Route: 042
     Dates: start: 20110509, end: 20110509
  13. FEIBA NF [Suspect]
     Route: 042
     Dates: start: 20110511, end: 20110511
  14. FEIBA NF [Suspect]
     Route: 042
     Dates: start: 20110503, end: 20110503
  15. FEIBA NF [Suspect]
     Route: 042
     Dates: start: 20110513, end: 20110513
  16. FEIBA NF [Suspect]
     Route: 042
     Dates: start: 20110515, end: 20110515
  17. FEIBA NF [Suspect]
     Route: 042
     Dates: start: 20110517, end: 20110517
  18. FEIBA NF [Suspect]
     Route: 042
     Dates: start: 20110519, end: 20110519
  19. FEIBA NF [Suspect]
     Route: 042
     Dates: start: 20110521, end: 20110521
  20. FEIBA NF [Suspect]
     Route: 042
     Dates: start: 20110523, end: 20110523
  21. FEIBA NF [Suspect]
     Route: 042
     Dates: start: 20110525, end: 20110525
  22. FEIBA NF [Suspect]
     Route: 042
     Dates: start: 20110527, end: 20110527
  23. FEIBA NF [Suspect]
     Route: 042
     Dates: start: 20110529, end: 20110529
  24. FEIBA NF [Suspect]
     Route: 042
     Dates: start: 20110531, end: 20110531
  25. FEIBA NF [Suspect]
     Route: 042
     Dates: start: 20110602, end: 20110602
  26. FEIBA NF [Suspect]
     Route: 042
     Dates: start: 20110604, end: 20110604
  27. FEIBA NF [Suspect]
     Route: 042
     Dates: start: 20110606, end: 20110606
  28. FEIBA NF [Suspect]
     Route: 042
     Dates: start: 20110608, end: 20110608
  29. FEIBA NF [Suspect]
     Route: 042
     Dates: start: 20110610, end: 20110610
  30. FEIBA NF [Suspect]
     Route: 042
     Dates: start: 20110614, end: 20110614
  31. FEIBA NF [Suspect]
     Route: 042
     Dates: start: 20110616, end: 20110616
  32. FEIBA NF [Suspect]
     Route: 042
     Dates: start: 20110618, end: 20110618
  33. FEIBA NF [Suspect]
     Route: 042
     Dates: start: 20110620, end: 20110620
  34. FEIBA NF [Suspect]
     Route: 042
     Dates: start: 20110622, end: 20110622
  35. FEIBA NF [Suspect]
     Route: 042
     Dates: start: 20110624, end: 20110624
  36. FEIBA NF [Suspect]
     Route: 042
     Dates: start: 20110626, end: 20110626
  37. FEIBA NF [Suspect]
     Route: 042
     Dates: start: 20110628, end: 20110628
  38. FEIBA NF [Suspect]
     Route: 042
     Dates: start: 20110630, end: 20110630
  39. FEIBA NF [Suspect]
     Route: 042
     Dates: start: 20110702, end: 20110702
  40. FEIBA NF [Suspect]
     Route: 042
     Dates: start: 20110704, end: 20110704
  41. FEIBA NF [Suspect]
     Route: 042
     Dates: start: 20110706, end: 20110706
  42. FEIBA NF [Suspect]
     Route: 042
     Dates: start: 20110708, end: 20110708
  43. FEIBA NF [Suspect]
     Route: 042
     Dates: start: 20110710, end: 20110710
  44. FEIBA NF [Suspect]
     Route: 042
     Dates: start: 20110712, end: 20110712
  45. FEIBA NF [Suspect]
     Route: 042
     Dates: start: 20110714, end: 20110714
  46. FEIBA NF [Suspect]
     Route: 042
     Dates: start: 20110716, end: 20110716
  47. FEIBA NF [Suspect]
     Route: 042
     Dates: start: 20110718, end: 20110718
  48. FEIBA NF [Suspect]
     Route: 042
     Dates: start: 20110720, end: 20110720
  49. FEIBA NF [Suspect]
     Route: 042
     Dates: start: 20110722, end: 20110722
  50. FEIBA NF [Suspect]
     Route: 042
     Dates: start: 20110724, end: 20110724
  51. FEIBA NF [Suspect]
     Route: 042
     Dates: start: 20110726, end: 20110726
  52. FEIBA NF [Suspect]
     Route: 042
     Dates: start: 20110728, end: 20110728
  53. FEIBA NF [Suspect]
     Route: 042
     Dates: start: 20110730, end: 20110730
  54. FEIBA NF [Suspect]
     Route: 042
     Dates: start: 20110801, end: 20110801
  55. FEIBA NF [Suspect]
     Route: 042
     Dates: start: 20110803, end: 20110803
  56. FEIBA NF [Suspect]
     Route: 042
     Dates: start: 20110805, end: 20110805
  57. FEIBA NF [Suspect]
     Route: 042
     Dates: start: 20110807, end: 20110807
  58. FEIBA NF [Suspect]
     Route: 042
     Dates: start: 20110809, end: 20110809
  59. FEIBA NF [Suspect]
     Route: 042
     Dates: start: 20110811, end: 20110811
  60. FEIBA NF [Suspect]
     Route: 042
     Dates: start: 20110813, end: 20110813
  61. FEIBA NF [Suspect]
     Route: 042
     Dates: start: 20110815, end: 20110815
  62. FEIBA NF [Suspect]
     Route: 042
     Dates: start: 20110817, end: 20110817
  63. FEIBA NF [Suspect]
     Route: 042
     Dates: start: 20110819, end: 20110819
  64. FEIBA NF [Suspect]
     Route: 042
     Dates: start: 20110821, end: 20110821
  65. FEIBA NF [Suspect]
     Route: 042
     Dates: start: 20110823, end: 20110823
  66. FEIBA NF [Suspect]
     Route: 042
     Dates: start: 20110825, end: 20110825
  67. FEIBA NF [Suspect]
     Route: 042
     Dates: start: 20110827, end: 20110827
  68. FEIBA NF [Suspect]
     Route: 042
     Dates: start: 20110829, end: 20110829
  69. FEIBA NF [Suspect]
     Route: 042
     Dates: start: 20110831, end: 20110831
  70. FEIBA NF [Suspect]
     Route: 042
     Dates: start: 20110902, end: 20110902
  71. FEIBA NF [Suspect]
     Route: 042
     Dates: start: 20110904, end: 20110904
  72. FEIBA NF [Suspect]
     Route: 042
     Dates: start: 20110906, end: 20110906
  73. FEIBA NF [Suspect]
     Route: 042
     Dates: start: 20110908, end: 20110908
  74. FEIBA NF [Suspect]
     Route: 042
     Dates: start: 20110912, end: 20110912
  75. FEIBA NF [Suspect]
     Route: 042
     Dates: start: 20110914, end: 20110914
  76. FEIBA NF [Suspect]
     Route: 042
     Dates: start: 20110916, end: 20110916
  77. FEIBA NF [Suspect]
     Route: 042
     Dates: start: 20110918, end: 20110918
  78. FEIBA NF [Suspect]
     Route: 042
     Dates: start: 20110920, end: 20110920
  79. FEIBA NF [Suspect]
     Route: 042
     Dates: start: 20110922, end: 20110922
  80. FEIBA NF [Suspect]
     Route: 042
     Dates: start: 20110924, end: 20110924
  81. FEIBA NF [Suspect]
     Route: 042
     Dates: start: 20110926, end: 20110926
  82. FEIBA NF [Suspect]
     Route: 042
     Dates: start: 20110928, end: 20110928
  83. FEIBA NF [Suspect]
     Route: 042
     Dates: start: 20110930, end: 20110930
  84. FEIBA NF [Suspect]
     Route: 042
     Dates: start: 20111002, end: 20111002
  85. FEIBA NF [Suspect]
     Route: 042
     Dates: start: 20111004, end: 20111004
  86. FEIBA NF [Suspect]
     Route: 042
     Dates: start: 20111006, end: 20111006
  87. FEIBA NF [Suspect]
     Route: 042
     Dates: start: 20111008, end: 20111008
  88. FEIBA NF [Suspect]
     Route: 042
     Dates: start: 20111010, end: 20111010
  89. FEIBA NF [Suspect]
     Route: 042
     Dates: start: 20111012, end: 20111012
  90. FEIBA NF [Suspect]
     Route: 042
     Dates: start: 20111014, end: 20111014
  91. FEIBA NF [Suspect]
     Route: 042
     Dates: start: 20111016, end: 20111016
  92. FEIBA NF [Suspect]
     Route: 042
     Dates: start: 20111018, end: 20111018
  93. FEIBA NF [Suspect]
     Route: 042
     Dates: start: 20111020, end: 20111020
  94. FEIBA NF [Suspect]
     Route: 042
     Dates: start: 20111022, end: 20111022
  95. FEIBA NF [Suspect]
     Route: 042
     Dates: start: 20111024, end: 20111024
  96. FEIBA NF [Suspect]
     Route: 042
     Dates: start: 20111026, end: 20111026
  97. FEIBA NF [Suspect]
     Route: 042
     Dates: start: 20111028, end: 20111028
  98. FEIBA NF [Suspect]
     Route: 042
     Dates: start: 20111030, end: 20111030
  99. FEIBA NF [Suspect]
     Route: 042
     Dates: start: 20111101, end: 20111101
  100. FEIBA NF [Suspect]
     Route: 042
     Dates: start: 20111103, end: 20111103
  101. FEIBA NF [Suspect]
     Route: 042
     Dates: start: 20111105, end: 20111105
  102. FEIBA NF [Suspect]
     Route: 042
     Dates: start: 20111107, end: 20111107
  103. FEIBA NF [Suspect]
     Route: 042
     Dates: start: 20111109, end: 20111109
  104. FEIBA NF [Suspect]
     Route: 042
     Dates: start: 20111111, end: 20111111
  105. FEIBA NF [Suspect]
     Route: 042
     Dates: start: 20111113, end: 20111113
  106. FEIBA NF [Suspect]
     Route: 042
     Dates: start: 20111115, end: 20111115
  107. FEIBA NF [Suspect]
     Route: 042
     Dates: start: 20111117, end: 20111117
  108. FEIBA NF [Suspect]
     Route: 042
     Dates: start: 20111119, end: 20111119
  109. FEIBA NF [Suspect]
     Route: 042
     Dates: start: 20111121, end: 20111121
  110. FEIBA NF [Suspect]
     Route: 042
     Dates: start: 20111123, end: 20111123
  111. FEIBA NF [Suspect]
     Route: 042
     Dates: start: 20111125, end: 20111125
  112. FEIBA NF [Suspect]
     Route: 042
     Dates: start: 20111127, end: 20111127
  113. FEIBA NF [Suspect]
     Route: 042
     Dates: start: 20111129, end: 20111129
  114. FEIBA NF [Suspect]
     Route: 042
     Dates: start: 20111201, end: 20111201
  115. FEIBA NF [Suspect]
     Route: 042
     Dates: start: 20111203, end: 20111203
  116. FEIBA NF [Suspect]
     Route: 042
     Dates: start: 20111205, end: 20111205
  117. FEIBA NF [Suspect]
     Route: 042
     Dates: start: 20111207, end: 20111207
  118. FEIBA NF [Suspect]
     Route: 042
     Dates: start: 20111209, end: 20111209
  119. FEIBA NF [Suspect]
     Route: 042
     Dates: start: 20111211, end: 20111211
  120. FEIBA NF [Suspect]
     Route: 042
     Dates: start: 20111213, end: 20111213
  121. FEIBA NF [Suspect]
     Route: 042
     Dates: start: 20111215, end: 20111215
  122. FEIBA NF [Suspect]
     Route: 042
     Dates: start: 20111217, end: 20111217
  123. FEIBA NF [Suspect]
     Route: 042
     Dates: start: 20111219, end: 20111219
  124. FEIBA NF [Suspect]
     Route: 042
     Dates: start: 20111221, end: 20111221
  125. FEIBA NF [Suspect]
     Route: 042
     Dates: start: 20111223, end: 20111223
  126. FEIBA NF [Suspect]
     Route: 042
     Dates: start: 20111225, end: 20111225
  127. FEIBA NF [Suspect]
     Route: 042
     Dates: start: 20111227, end: 20111227
  128. FEIBA NF [Suspect]
     Route: 042
     Dates: start: 20111229, end: 20111229
  129. FEIBA NF [Suspect]
     Route: 042
     Dates: start: 20111231, end: 20111231
  130. FEIBA NF [Suspect]
     Route: 042
     Dates: start: 20120102, end: 20120102
  131. FEIBA NF [Suspect]
     Route: 042
     Dates: start: 20120104, end: 20120104
  132. FEIBA NF [Suspect]
     Route: 042
     Dates: start: 20120106, end: 20120106
  133. FEIBA NF [Suspect]
     Route: 042
     Dates: start: 20120108, end: 20120108
  134. FEIBA NF [Suspect]
     Route: 042
     Dates: start: 20120110, end: 20120110
  135. FEIBA NF [Suspect]
     Route: 042
     Dates: start: 20120112, end: 20120112
  136. FEIBA NF [Suspect]
     Route: 042
     Dates: start: 20120114, end: 20120114
  137. FEIBA NF [Suspect]
     Route: 042
     Dates: start: 20120116, end: 20120116
  138. FEIBA NF [Suspect]
     Route: 042
     Dates: start: 20120118, end: 20120118
  139. FEIBA NF [Suspect]
     Route: 042
     Dates: start: 20120120, end: 20120120
  140. FEIBA NF [Suspect]
     Route: 042
     Dates: start: 20120122, end: 20120122
  141. FEIBA NF [Suspect]
     Route: 042
     Dates: start: 20120124, end: 20120124
  142. FEIBA NF [Suspect]
     Route: 042
     Dates: start: 20120126, end: 20120126
  143. FEIBA NF [Suspect]
     Route: 042
     Dates: start: 20120128, end: 20120128
  144. FEIBA NF [Suspect]
     Route: 042
     Dates: start: 20120130, end: 20120130
  145. FEIBA NF [Suspect]
     Route: 042
     Dates: start: 20120201, end: 20120201
  146. FEIBA NF [Suspect]
     Route: 042
     Dates: start: 20120203, end: 20120203
  147. FEIBA NF [Suspect]
     Route: 042
     Dates: start: 20120205, end: 20120205
  148. FEIBA NF [Suspect]
     Route: 042
     Dates: start: 20120207, end: 20120207
  149. FEIBA NF [Suspect]
     Route: 042
     Dates: start: 20120209, end: 20120209
  150. FEIBA NF [Suspect]
     Route: 042
     Dates: start: 20120211, end: 20120211
  151. FEIBA NF [Suspect]
     Route: 042
     Dates: start: 20120213, end: 20120213
  152. FEIBA NF [Suspect]
     Route: 042
     Dates: start: 20120215, end: 20120215
  153. FEIBA NF [Suspect]
     Route: 042
     Dates: start: 20120217, end: 20120217
  154. FEIBA NF [Suspect]
     Route: 042
     Dates: start: 20120219, end: 20120219
  155. FEIBA NF [Suspect]
     Route: 042
     Dates: start: 20120221, end: 20120221
  156. FEIBA NF [Suspect]
     Route: 042
     Dates: start: 20120223, end: 20120223
  157. FEIBA NF [Suspect]
     Route: 042
     Dates: start: 20120225, end: 20120225
  158. FEIBA NF [Suspect]
     Route: 042
     Dates: start: 20120227, end: 20120227
  159. FEIBA NF [Suspect]
     Route: 042
     Dates: start: 20120229, end: 20120229
  160. FEIBA NF [Suspect]
     Route: 042
     Dates: start: 20120302, end: 20120302
  161. FEIBA NF [Suspect]
     Route: 042
     Dates: start: 20120304, end: 20120304
  162. FEIBA NF [Suspect]
     Route: 042
     Dates: start: 20120306, end: 20120306
  163. FEIBA NF [Suspect]
     Route: 042
     Dates: start: 20120308, end: 20120308
  164. FEIBA NF [Suspect]
     Route: 042
     Dates: start: 20120310, end: 20120310
  165. FEIBA NF [Suspect]
     Route: 042
     Dates: start: 20120312, end: 20120312
  166. FEIBA NF [Suspect]
     Route: 042
     Dates: start: 20120314, end: 20120314
  167. FEIBA NF [Suspect]
     Route: 042
     Dates: start: 20120316, end: 20120316
  168. FEIBA NF [Suspect]
     Route: 042
     Dates: start: 20120318, end: 20120318
  169. FEIBA NF [Suspect]
     Route: 042
     Dates: start: 20120320, end: 20120320
  170. FEIBA NF [Suspect]
     Route: 042
     Dates: start: 20120322, end: 20120322
  171. FEIBA NF [Suspect]
     Route: 042
     Dates: start: 20120324, end: 20120324
  172. FEIBA NF [Suspect]
     Route: 042
     Dates: start: 20120326, end: 20120326
  173. FEIBA NF [Suspect]
     Route: 042
     Dates: start: 20120328, end: 20120328
  174. FEIBA NF [Suspect]
     Route: 042
     Dates: start: 20120330, end: 20120330
  175. FEIBA NF [Suspect]
     Route: 042
     Dates: start: 20120401, end: 20120401
  176. FEIBA NF [Suspect]
     Route: 042
     Dates: start: 20120403, end: 20120403
  177. FEIBA NF [Suspect]
     Route: 042
     Dates: start: 20120405, end: 20120405
  178. FEIBA NF [Suspect]
     Route: 042
     Dates: start: 20120407, end: 20120407
  179. FEIBA NF [Suspect]
     Route: 042
     Dates: start: 20120409, end: 20120409
  180. FEIBA NF [Suspect]
     Route: 042
     Dates: start: 20110610, end: 20110610
  181. FEIBA NF [Suspect]
     Route: 042
     Dates: start: 20110807, end: 20110807
  182. FEIBA NF [Suspect]
     Route: 042
     Dates: start: 20110903, end: 20110903
  183. FEIBA NF [Suspect]
     Route: 042
     Dates: start: 20111118, end: 20111118
  184. FEIBA NF [Suspect]
     Route: 042
     Dates: start: 20111128, end: 20111128
  185. FEIBA NF [Suspect]
     Route: 042
     Dates: start: 20111222, end: 20111222
  186. FEIBA NF [Suspect]
     Route: 042
     Dates: start: 20120226, end: 20120226
  187. FEIBA NF [Suspect]
     Route: 042
     Dates: start: 20120301, end: 20120301
  188. FEIBA NF [Suspect]
     Route: 042
     Dates: start: 20120313, end: 20120313
  189. FEIBA NF [Suspect]
     Route: 042
     Dates: start: 20110612, end: 20110612
  190. FEIBA NF [Suspect]
     Route: 042
     Dates: start: 20110910, end: 20110910
  191. FEIBA NF [Suspect]
     Route: 042
     Dates: start: 20110808, end: 20110808
  192. KETONAL [Concomitant]
     Indication: PAIN IN KNEE
     Route: 048
     Dates: start: 20110610, end: 20110612

REACTIONS (1)
  - Hepatitis B surface antibody positive [Recovered/Resolved]
